FAERS Safety Report 24300562 (Version 2)
Quarter: 2024Q4

REPORT INFORMATION
  Report Type: Spontaneous
  Country: US (occurrence: US)
  Receive Date: 20240910
  Receipt Date: 20241128
  Transmission Date: 20250115
  Serious: No
  Sender: NOVARTIS
  Company Number: US-002147023-NVSC2024US179706

PATIENT
  Sex: Male

DRUGS (2)
  1. KESIMPTA [Suspect]
     Active Substance: OFATUMUMAB
     Indication: Product used for unknown indication
     Dosage: UNK
     Route: 065
  2. THYMOSIN .BETA.-4 [Suspect]
     Active Substance: THYMOSIN .BETA.-4
     Indication: Product used for unknown indication
     Dosage: 10 MG
     Route: 058

REACTIONS (1)
  - Drug ineffective [Unknown]
